FAERS Safety Report 17734900 (Version 1)
Quarter: 2020Q2

REPORT INFORMATION
  Report Type: Spontaneous
  Country: ES (occurrence: ES)
  Receive Date: 20200501
  Receipt Date: 20200501
  Transmission Date: 20200714
  Serious: Yes (Hospitalization)
  Sender: FDA-Public Use
  Company Number: ES-MYLANLABS-2020M1042797

PATIENT
  Age: 69 Year
  Sex: Female
  Weight: 57 kg

DRUGS (3)
  1. FUROSEMIDE. [Interacting]
     Active Substance: FUROSEMIDE
     Indication: VENTRICULAR DYSFUNCTION
     Dosage: UNK
     Route: 048
     Dates: start: 20200203
  2. EPLERENONE. [Suspect]
     Active Substance: EPLERENONE
     Indication: VENTRICULAR DYSFUNCTION
     Dosage: 50 MILLIGRAM, QD (50 MG/24H)
     Route: 048
     Dates: start: 20200203, end: 20200227
  3. ENALAPRIL [Interacting]
     Active Substance: ENALAPRIL
     Indication: VENTRICULAR DYSFUNCTION
     Dosage: 5 MILLIGRAM, BID (5 MG/12H)
     Route: 048
     Dates: start: 20200203, end: 20200227

REACTIONS (2)
  - Hyponatraemia [Recovered/Resolved]
  - Drug interaction [Unknown]

NARRATIVE: CASE EVENT DATE: 20200227
